FAERS Safety Report 6677330-6 (Version None)
Quarter: 2010Q2

REPORT INFORMATION
  Report Type: 
  Country: None (occurrence: None)
  Receive Date: 20100409
  Receipt Date: 20100409
  Transmission Date: 20101027
  Serious: Yes (Disabling)
  Sender: FDA-Public Use
  Company Number: None

PATIENT
  Sex: Female
  Weight: 73.4827 kg

DRUGS (1)
  1. MAGNEVIST [Suspect]
     Indication: MASS
     Dosage: 15 ML
     Dates: start: 20100215

REACTIONS (7)
  - DRUG TOXICITY [None]
  - GAIT DISTURBANCE [None]
  - INCORRECT ROUTE OF DRUG ADMINISTRATION [None]
  - LIMB DISCOMFORT [None]
  - MUSCLE SPASMS [None]
  - PAIN [None]
  - WRONG TECHNIQUE IN DRUG USAGE PROCESS [None]
